FAERS Safety Report 11239118 (Version 1)
Quarter: 2015Q3

REPORT INFORMATION
  Report Type: Spontaneous
  Country: US (occurrence: None)
  Receive Date: 20150701
  Receipt Date: 20150701
  Transmission Date: 20151125
  Serious: No
  Sender: FDA-Public Use
  Company Number: PR 11617

PATIENT
  Age: 72 Year
  Sex: Male

DRUGS (1)
  1. ZIOPTAN [Suspect]
     Active Substance: TAFLUPROST
     Indication: GLAUCOMA
     Dates: start: 20150609, end: 20150613

REACTIONS (2)
  - Dizziness postural [None]
  - Nausea [None]

NARRATIVE: CASE EVENT DATE: 20150610
